FAERS Safety Report 5757637-7 (Version None)
Quarter: 2008Q2

REPORT INFORMATION
  Report Type: 
  Country: None (occurrence: None)
  Receive Date: 20080529
  Receipt Date: 20080516
  Transmission Date: 20081010
  Serious: Yes (Other)
  Sender: FDA-Public Use
  Company Number: 2008013054

PATIENT
  Age: 57 Year
  Sex: Male

DRUGS (1)
  1. MINOXIDIL [Suspect]
     Indication: ALOPECIA
     Dosage: 1 ML ONCE DAILY (1 ML, 1 IN 1 D), TOPICAL
     Route: 061
     Dates: start: 20080508, end: 20080512

REACTIONS (4)
  - APPLICATION SITE BURN [None]
  - APPLICATION SITE INFLAMMATION [None]
  - BURNING SENSATION [None]
  - FEELING ABNORMAL [None]
